FAERS Safety Report 10675045 (Version 4)
Quarter: 2015Q2

REPORT INFORMATION
  Report Type: Spontaneous
  Country: US (occurrence: US)
  Receive Date: 20141224
  Receipt Date: 20150507
  Transmission Date: 20150821
  Serious: No
  Sender: FDA-Public Use
  Company Number: US-PFIZER INC-2014351880

PATIENT
  Age: 15 Year
  Sex: Male
  Weight: 53 kg

DRUGS (3)
  1. ADVIL [Suspect]
     Active Substance: IBUPROFEN
     Indication: VIRAL INFECTION
     Dosage: 400 MG, SINGLE
     Route: 048
     Dates: start: 20141213, end: 20141213
  2. ADVIL [Suspect]
     Active Substance: IBUPROFEN
     Indication: MALAISE
  3. ADVIL [Suspect]
     Active Substance: IBUPROFEN
     Indication: PYREXIA

REACTIONS (2)
  - Intentional product misuse [Unknown]
  - Lip swelling [Recovered/Resolved]

NARRATIVE: CASE EVENT DATE: 20141213
